FAERS Safety Report 9745411 (Version 1)
Quarter: 2013Q4

REPORT INFORMATION
  Report Type: Spontaneous
  Country: US (occurrence: None)
  Receive Date: 20131204
  Receipt Date: 20131204
  Transmission Date: 20140711
  Serious: Yes (Other)
  Sender: FDA-Public Use
  Company Number: FK201305173

PATIENT
  Age: 3 Year
  Sex: Female

DRUGS (3)
  1. IRINOTECAN [Suspect]
     Indication: BRAIN STEM GLIOMA
     Dosage: 125 MG/M2, 1 IN 1 WK, INTRAVENOUS (NOT OTHERWISE SPECIFIED)
     Route: 042
  2. TEMOZOLOMIDE [Suspect]
     Indication: BRAIN STEM GLIOMA
     Dosage: 75 MG/M2, 1 D, ORAL
     Route: 048
  3. BEVACIZUMAB [Suspect]
     Indication: BRAIN STEM GLIOMA
     Dosage: 15 MG/KG,  1 IN 3 WK

REACTIONS (6)
  - Neutropenia [None]
  - Hypertension [None]
  - Diarrhoea [None]
  - Abdominal pain [None]
  - Dehydration [None]
  - Tumour haemorrhage [None]
